FAERS Safety Report 25250676 (Version 1)
Quarter: 2025Q2

REPORT INFORMATION
  Report Type: Spontaneous
  Country: US (occurrence: US)
  Receive Date: 20250429
  Receipt Date: 20250429
  Transmission Date: 20250717
  Serious: Yes (Life-Threatening, Disabling, Other)
  Sender: CHATTEM
  Company Number: US-OPELLA-2025OHG012781

PATIENT
  Sex: Male

DRUGS (1)
  1. GOLD BOND ORIGINAL STRENGTH [Suspect]
     Active Substance: MENTHOL
     Indication: Product used for unknown indication
     Route: 065

REACTIONS (3)
  - Mesothelioma [Unknown]
  - Exposure to chemical pollution [Unknown]
  - Occupational exposure to toxic agent [Unknown]

NARRATIVE: CASE EVENT DATE: 20250301
